FAERS Safety Report 9996782 (Version 1)
Quarter: 2014Q1

REPORT INFORMATION
  Report Type: Spontaneous
  Country: AU (occurrence: AU)
  Receive Date: 20140311
  Receipt Date: 20140311
  Transmission Date: 20141002
  Serious: Yes (Life-Threatening, Hospitalization)
  Sender: FDA-Public Use
  Company Number: AU-BANPHARM-20142277

PATIENT
  Age: 44 Year
  Sex: Male

DRUGS (5)
  1. IBUPROFEN UNKNOWN PRODUCT [Suspect]
     Indication: PAIN
     Dosage: 2400-3200MG, PRN,
  2. FISH OIL [Concomitant]
     Dosage: 10MG, HS,
  3. ASCORBIC ACID [Concomitant]
  4. MULTIVITAMIN [Concomitant]
  5. ROSUVASTATIN [Concomitant]

REACTIONS (2)
  - Febrile neutropenia [Recovered/Resolved]
  - Biopsy bone marrow abnormal [Recovered/Resolved]
